FAERS Safety Report 10403351 (Version 2)
Quarter: 2014Q3

REPORT INFORMATION
  Report Type: Spontaneous
  Country: US (occurrence: US)
  Receive Date: 20140822
  Receipt Date: 20140911
  Transmission Date: 20150326
  Serious: No
  Sender: FDA-Public Use
  Company Number: US-TEVA-504558USA

PATIENT
  Age: 26 Year
  Sex: Female
  Weight: 59.02 kg

DRUGS (4)
  1. TRAMADOL [Concomitant]
     Active Substance: TRAMADOL
     Indication: EAR INFECTION
  2. TAKE ACTION [Suspect]
     Active Substance: LEVONORGESTREL
     Indication: POST COITAL CONTRACEPTION
     Dosage: 1.5 MILLIGRAM DAILY;
     Route: 048
     Dates: start: 20140814, end: 20140814
  3. AMOXICILLIN. [Concomitant]
     Active Substance: AMOXICILLIN
     Indication: EAR INFECTION
  4. TYLENOL WITH CODEINE [Concomitant]
     Active Substance: ACETAMINOPHEN\CODEINE PHOSPHATE
     Indication: EAR INFECTION

REACTIONS (4)
  - Dizziness [Recovered/Resolved]
  - Menstruation irregular [Recovered/Resolved]
  - Migraine [Recovered/Resolved]
  - Vomiting [Recovered/Resolved]

NARRATIVE: CASE EVENT DATE: 20140820
